FAERS Safety Report 19428073 (Version 1)
Quarter: 2021Q2

REPORT INFORMATION
  Report Type: Other
  Country: US (occurrence: US)
  Receive Date: 20210616
  Receipt Date: 20210616
  Transmission Date: 20210717
  Serious: No
  Sender: FDA-Public Use
  Company Number: US-ROCHE-2689961

PATIENT
  Age: 46 Year
  Sex: Female

DRUGS (2)
  1. TOCILIZUMAB. [Suspect]
     Active Substance: TOCILIZUMAB
     Indication: AUTOIMMUNE RETINOPATHY
  2. TOCILIZUMAB. [Suspect]
     Active Substance: TOCILIZUMAB
     Indication: CYSTOID MACULAR OEDEMA
     Route: 042
     Dates: start: 201612

REACTIONS (1)
  - Mouth ulceration [Unknown]
